FAERS Safety Report 5166592-2 (Version None)
Quarter: 2006Q4

REPORT INFORMATION
  Report Type: 
  Country: None (occurrence: None)
  Receive Date: 20061207
  Receipt Date: 20061127
  Transmission Date: 20070319
  Serious: Yes (Life-Threatening)
  Sender: FDA-Public Use
  Company Number: FR-AVENTIS-200614182FR

PATIENT
  Age: 80 Year
  Sex: Male

DRUGS (11)
  1. LASILIX                            /00032601/ [Suspect]
     Indication: DRUG USE FOR UNKNOWN INDICATION
     Route: 048
     Dates: end: 20061101
  2. SOTALOL HCL [Suspect]
     Indication: DRUG USE FOR UNKNOWN INDICATION
     Route: 048
     Dates: start: 20061020, end: 20061101
  3. VASTAREL [Concomitant]
     Route: 048
  4. IKOREL [Concomitant]
     Route: 048
  5. OMEPRAZOLE [Concomitant]
     Route: 048
  6. KARDEGIC                           /00002703/ [Concomitant]
     Route: 048
  7. LEVOTHYROXINE SODIUM [Concomitant]
     Dosage: DOSE: 125 AND 150
     Route: 048
  8. PLAVIX [Concomitant]
     Route: 048
  9. TAHOR [Concomitant]
     Route: 048
  10. NITRODERM [Concomitant]
  11. ALLOPURINOL [Concomitant]

REACTIONS (13)
  - BUNDLE BRANCH BLOCK RIGHT [None]
  - CEREBRAL ISCHAEMIA [None]
  - DEPRESSED LEVEL OF CONSCIOUSNESS [None]
  - DRUG INTERACTION [None]
  - ELECTROCARDIOGRAM QT PROLONGED [None]
  - HYPERTONIA [None]
  - HYPOKALAEMIA [None]
  - LUNG DISORDER [None]
  - POST PROCEDURAL HAEMORRHAGE [None]
  - SEPTIC SHOCK [None]
  - SHOCK HAEMORRHAGIC [None]
  - TORSADE DE POINTES [None]
  - VENTRICULAR FIBRILLATION [None]
